FAERS Safety Report 10814926 (Version 1)
Quarter: 2015Q1

REPORT INFORMATION
  Report Type: Report from Study
  Country: US (occurrence: US)
  Receive Date: 20150218
  Receipt Date: 20150218
  Transmission Date: 20150721
  Serious: No
  Sender: FDA-Public Use
  Company Number: US-ABBVIE-14K-163-1279599-00

PATIENT
  Age: 54 Year
  Sex: Male

DRUGS (5)
  1. UNKNOWN SINUS MEDICINE [Concomitant]
     Indication: SINUSITIS
  2. POTASSIUM [Concomitant]
     Active Substance: POTASSIUM
     Indication: PRODUCT USED FOR UNKNOWN INDICATION
  3. HUMIRA [Suspect]
     Active Substance: ADALIMUMAB
     Indication: CROHN^S DISEASE
     Dosage: LOADING DOSE
     Dates: start: 20140823, end: 20140823
  4. UNKNOWN MEDICATION [Concomitant]
     Active Substance: UNSPECIFIED INGREDIENT
     Indication: BLOOD PRESSURE
  5. HUMIRA [Suspect]
     Active Substance: ADALIMUMAB

REACTIONS (4)
  - Rash [Not Recovered/Not Resolved]
  - Rash pruritic [Not Recovered/Not Resolved]
  - Papule [Not Recovered/Not Resolved]
  - Miliaria [Not Recovered/Not Resolved]

NARRATIVE: CASE EVENT DATE: 20140825
